FAERS Safety Report 15247330 (Version 2)
Quarter: 2018Q3

REPORT INFORMATION
  Report Type: Report from Study
  Country: None (occurrence: TR)
  Receive Date: 20180807
  Receipt Date: 20180809
  Transmission Date: 20181010
  Serious: Yes (Hospitalization)
  Sender: FDA-Public Use
  Company Number: TR-ABBVIE-18K-161-2411396-00

PATIENT
  Age: 59 Year
  Sex: Male
  Weight: 75 kg

DRUGS (4)
  1. MADOPAR [Concomitant]
     Active Substance: BENSERAZIDE HYDROCHLORIDE\LEVODOPA
     Indication: PARKINSON^S DISEASE
     Route: 048
     Dates: start: 20180730
  2. DUODOPA [Suspect]
     Active Substance: CARBIDOPA\LEVODOPA
     Dosage: MORNING DOSE: 6.70 ML?CONTINUOUS DOSE: 3.40 ML?EXTRA DOSE: 1.00 ML
     Route: 050
     Dates: end: 20180730
  3. MOTILIUM [Concomitant]
     Active Substance: DOMPERIDONE
     Indication: PARKINSON^S DISEASE
     Route: 048
     Dates: start: 20180601
  4. DUODOPA [Suspect]
     Active Substance: CARBIDOPA\LEVODOPA
     Indication: PARKINSON^S DISEASE
     Dosage: MORNING DOSE. 6.70 ML?CONTINUING DOSE: 3.40 ML?EXTRA DOSE: 1.00 ML
     Route: 050
     Dates: start: 20180508, end: 20180705

REACTIONS (3)
  - Peripheral swelling [Recovered/Resolved]
  - Pain in extremity [Not Recovered/Not Resolved]
  - Therapy cessation [Unknown]

NARRATIVE: CASE EVENT DATE: 201806
